FAERS Safety Report 21528813 (Version 2)
Quarter: 2022Q4

REPORT INFORMATION
  Report Type: Report from Study
  Country: US (occurrence: US)
  Receive Date: 20221031
  Receipt Date: 20221129
  Transmission Date: 20230113
  Serious: No
  Sender: FDA-Public Use
  Company Number: US-BIOVITRUM-2022US12245

PATIENT
  Age: 43 Year
  Sex: Male

DRUGS (2)
  1. KINERET [Suspect]
     Active Substance: ANAKINRA
     Indication: Hidradenitis
     Dates: start: 20220930
  2. KINERET [Suspect]
     Active Substance: ANAKINRA
     Dates: start: 20221007

REACTIONS (12)
  - Contusion [Recovering/Resolving]
  - Fatigue [Unknown]
  - Swelling [Unknown]
  - Adverse drug reaction [Not Recovered/Not Resolved]
  - Injection site swelling [Unknown]
  - Injection site reaction [Unknown]
  - Injection site rash [Unknown]
  - Injection site inflammation [Unknown]
  - Injection site mass [Unknown]
  - Injection site erythema [Unknown]
  - Injection site pruritus [Unknown]
  - Off label use [Not Recovered/Not Resolved]

NARRATIVE: CASE EVENT DATE: 20220930
